FAERS Safety Report 4610437-3 (Version None)
Quarter: 2005Q1

REPORT INFORMATION
  Report Type: 
  Country: None (occurrence: None)
  Receive Date: 20050314
  Receipt Date: 20050301
  Transmission Date: 20050727
  Serious: Yes (Death)
  Sender: FDA-Public Use
  Company Number: 2005039894

PATIENT
  Age: 67 Year
  Sex: Male
  Weight: 81.6475 kg

DRUGS (7)
  1. CELEBREX [Suspect]
     Indication: ARTHRITIS
     Dosage: 100 MG (100 MG, 1 IN 1 D), ORAL
     Route: 048
     Dates: end: 19991201
  2. LEVOTHYROXINE SODIUM [Concomitant]
  3. POTASSIUM ACETATE [Concomitant]
  4. LISINOPRIL [Concomitant]
  5. GLYBURIDE [Concomitant]
  6. NIFEDIPINE [Concomitant]
  7. WARFARIN SODIUM (WARARIN SODIUM) [Concomitant]

REACTIONS (2)
  - FEELING COLD [None]
  - MYOCARDIAL INFARCTION [None]
